FAERS Safety Report 23135095 (Version 1)
Quarter: 2023Q4

REPORT INFORMATION
  Report Type: Spontaneous
  Country: IT (occurrence: IT)
  Receive Date: 20231101
  Receipt Date: 20231101
  Transmission Date: 20240110
  Serious: Yes (Other)
  Sender: FDA-Public Use
  Company Number: IT-BIOVITRUM-2023-IT-017345

PATIENT
  Age: 40 Year

DRUGS (1)
  1. ANAKINRA [Suspect]
     Active Substance: ANAKINRA
     Indication: Still^s disease
     Dosage: 100 MG/TWICE DAILY

REACTIONS (3)
  - Haemophagocytic lymphohistiocytosis [Unknown]
  - Alveolar proteinosis [Unknown]
  - Off label use [Unknown]
